FAERS Safety Report 10032820 (Version 1)
Quarter: 2014Q1

REPORT INFORMATION
  Report Type: Spontaneous
  Country: JP (occurrence: JP)
  Receive Date: 20140324
  Receipt Date: 20140324
  Transmission Date: 20141002
  Serious: No
  Sender: FDA-Public Use
  Company Number: JP-PFIZER INC-2014081261

PATIENT
  Sex: 0

DRUGS (1)
  1. FOSPHENYTOIN SODIUM [Suspect]
     Dosage: UNK

REACTIONS (1)
  - Infusion site extravasation [Unknown]
